FAERS Safety Report 8220603-6 (Version None)
Quarter: 2012Q1

REPORT INFORMATION
  Report Type: 
  Country: None (occurrence: None)
  Receive Date: 20120320
  Receipt Date: 20120313
  Transmission Date: 20120608
  Serious: Yes (Other)
  Sender: FDA-Public Use
  Company Number: BE-UCBSA-031779

PATIENT
  Age: 28 Year
  Sex: Female

DRUGS (2)
  1. TOPAMAX [Concomitant]
  2. VIMPAT [Suspect]
     Indication: PARTIAL SEIZURES WITH SECONDARY GENERALISATION

REACTIONS (3)
  - ABORTION [None]
  - UNINTENDED PREGNANCY [None]
  - CONVULSION [None]
